FAERS Safety Report 7772846-3 (Version None)
Quarter: 2011Q3

REPORT INFORMATION
  Report Type: 
  Country: None (occurrence: None)
  Receive Date: 20110922
  Receipt Date: 20100930
  Transmission Date: 20111222
  Serious: Yes (Death, Hospitalization)
  Sender: FDA-Public Use
  Company Number: US-ASTRAZENECA-2010SE46029

PATIENT
  Age: 576 Month
  Sex: Female
  Weight: 61.2 kg

DRUGS (5)
  1. SYNTHROID [Concomitant]
     Indication: THYROID DISORDER
  2. PROPRANOLOL [Concomitant]
     Indication: HYPERTENSION
  3. VYTORIN [Concomitant]
     Indication: HYPERCHOLESTEROLAEMIA
  4. SEROQUEL [Suspect]
     Indication: SCHIZOPHRENIA
     Route: 048
  5. SEROQUEL [Suspect]
     Indication: BIPOLAR DISORDER
     Route: 048

REACTIONS (2)
  - PSYCHOTIC DISORDER [None]
  - OVERDOSE [None]
